FAERS Safety Report 19235419 (Version 6)
Quarter: 2022Q2

REPORT INFORMATION
  Report Type: Spontaneous
  Country: US (occurrence: US)
  Receive Date: 20210510
  Receipt Date: 20220512
  Transmission Date: 20220721
  Serious: No
  Sender: FDA-Public Use
  Company Number: US-BRISTOL-MYERS SQUIBB COMPANY-BMS-2021-044050

PATIENT
  Age: 62 Year
  Sex: Female

DRUGS (4)
  1. ORENCIA [Suspect]
     Active Substance: ABATACEPT
     Indication: Rheumatoid arthritis
     Dosage: 125 MILLIGRAM, QWK
     Route: 058
     Dates: start: 20200616
  2. ORENCIA [Suspect]
     Active Substance: ABATACEPT
     Dosage: 125 MILLIGRAM, QWK
     Route: 058
     Dates: start: 20200915
  3. ORENCIA [Suspect]
     Active Substance: ABATACEPT
     Dosage: 125 MILLIGRAM, QWK
     Route: 058
     Dates: start: 20201029
  4. ORENCIA [Suspect]
     Active Substance: ABATACEPT
     Route: 058
     Dates: start: 202006

REACTIONS (5)
  - Joint swelling [Unknown]
  - Arthralgia [Unknown]
  - Ear infection [Unknown]
  - Nasopharyngitis [Unknown]
  - Migraine [Unknown]

NARRATIVE: CASE EVENT DATE: 20210401
